FAERS Safety Report 20331530 (Version 1)
Quarter: 2022Q1

REPORT INFORMATION
  Report Type: Spontaneous
  Country: US (occurrence: US)
  Receive Date: 20220113
  Receipt Date: 20220113
  Transmission Date: 20220423
  Serious: No
  Sender: FDA-Public Use
  Company Number: US-LUPIN PHARMACEUTICALS INC.-2021-26855

PATIENT
  Age: 40 Year
  Sex: Female

DRUGS (1)
  1. TRIAMCINOLONE ACETONIDE [Suspect]
     Active Substance: TRIAMCINOLONE ACETONIDE
     Indication: Pain in extremity
     Dosage: 1 DOSAGE FORM (0.5 CC OF TRIAMCINOLONE ACETONIDE 40 MG/DL WAS ADMINISTERED INTO THE RIGHT FIRST META
     Route: 051

REACTIONS (1)
  - Skin discolouration [Recovered/Resolved]
